FAERS Safety Report 7520749-1 (Version None)
Quarter: 2011Q2

REPORT INFORMATION
  Report Type: 
  Country: None (occurrence: None)
  Receive Date: 20110603
  Receipt Date: 20101122
  Transmission Date: 20111010
  Serious: Yes (Other)
  Sender: FDA-Public Use
  Company Number: US-BAYER-2010-000295

PATIENT
  Sex: Female

DRUGS (1)
  1. INTERFERON BETA-1B [Suspect]
     Dosage: UNK,QOD
     Route: 058
     Dates: start: 20100713, end: 20101101

REACTIONS (5)
  - CORONARY ARTERY STENOSIS [None]
  - CHEST PAIN [None]
  - BLOOD PRESSURE INCREASED [None]
  - ASTHENIA [None]
  - DYSPNOEA [None]
